FAERS Safety Report 18193082 (Version 1)
Quarter: 2020Q3

REPORT INFORMATION
  Report Type: Spontaneous
  Country: US (occurrence: US)
  Receive Date: 20200825
  Receipt Date: 20200825
  Transmission Date: 20201103
  Serious: Yes (Death)
  Sender: FDA-Public Use
  Company Number: None

PATIENT
  Age: 59 Year
  Sex: Female

DRUGS (4)
  1. BIKTARVY [Suspect]
     Active Substance: BICTEGRAVIR SODIUM\EMTRICITABINE\TENOFOVIR ALAFENAMIDE FUMARATE
     Indication: HIV INFECTION
     Route: 048
     Dates: start: 20200724, end: 20200820
  2. TRAZODONE 150MG [Concomitant]
     Dates: end: 20200820
  3. AMITRIPTYLINE [Concomitant]
     Active Substance: AMITRIPTYLINE
     Dates: end: 20200820
  4. PIOGLITAZONE 15MG [Concomitant]
     Dates: end: 20200820

REACTIONS (1)
  - Death [None]

NARRATIVE: CASE EVENT DATE: 20200820
